FAERS Safety Report 12320142 (Version 1)
Quarter: 2016Q2

REPORT INFORMATION
  Report Type: Spontaneous
  Country: US (occurrence: US)
  Receive Date: 20160429
  Receipt Date: 20160429
  Transmission Date: 20160815
  Serious: No
  Sender: FDA-Public Use
  Company Number: US-CELGENEUS-USA-2016046168

PATIENT
  Sex: Female
  Weight: 111.23 kg

DRUGS (15)
  1. REVLIMID [Suspect]
     Active Substance: LENALIDOMIDE
     Indication: PLASMA CELL MYELOMA
     Route: 048
     Dates: start: 201112
  2. CENESTIN [Concomitant]
     Active Substance: ESTROGENS, CONJUGATED SYNTHETIC A
     Indication: PRODUCT USED FOR UNKNOWN INDICATION
     Dosage: 220 MILLIGRAM
     Route: 065
  3. LINZESS [Concomitant]
     Active Substance: LINACLOTIDE
     Indication: PRODUCT USED FOR UNKNOWN INDICATION
     Route: 065
  4. VITAMIN B-1 [Concomitant]
     Active Substance: THIAMINE
     Indication: PRODUCT USED FOR UNKNOWN INDICATION
     Dosage: 90 MICROGRAM
     Route: 065
  5. REVLIMID [Suspect]
     Active Substance: LENALIDOMIDE
     Dosage: 5-15 MG
     Route: 048
     Dates: start: 201308
  6. CALCIUM 500 + VITAMIN D3 [Concomitant]
     Indication: PRODUCT USED FOR UNKNOWN INDICATION
     Route: 065
  7. ALEVE [Concomitant]
     Active Substance: NAPROXEN SODIUM
     Indication: PRODUCT USED FOR UNKNOWN INDICATION
     Route: 065
  8. BACTRIM [Concomitant]
     Active Substance: SULFAMETHOXAZOLE\TRIMETHOPRIM
     Indication: PRODUCT USED FOR UNKNOWN INDICATION
     Dosage: 400MG-8
     Route: 065
  9. VITAMIN B12 [Concomitant]
     Active Substance: CYANOCOBALAMIN
     Indication: PRODUCT USED FOR UNKNOWN INDICATION
     Route: 065
  10. REVLIMID [Suspect]
     Active Substance: LENALIDOMIDE
     Route: 048
     Dates: start: 20140312
  11. REVLIMID [Suspect]
     Active Substance: LENALIDOMIDE
     Route: 048
     Dates: start: 201505
  12. VENLAFAXINE HCL [Concomitant]
     Active Substance: VENLAFAXINE HYDROCHLORIDE
     Indication: PRODUCT USED FOR UNKNOWN INDICATION
     Dosage: 37
     Route: 065
  13. VITAMIN D3 [Concomitant]
     Active Substance: CHOLECALCIFEROL
     Indication: PRODUCT USED FOR UNKNOWN INDICATION
     Dosage: 100 MILLIGRAM
     Route: 065
  14. PROAIR HFA [Concomitant]
     Active Substance: ALBUTEROL SULFATE
     Indication: PRODUCT USED FOR UNKNOWN INDICATION
     Dosage: .3 MILLIGRAM
     Route: 065
  15. REVLIMID [Suspect]
     Active Substance: LENALIDOMIDE
     Dosage: 25-5 MG
     Route: 048
     Dates: start: 201207

REACTIONS (4)
  - Malaise [Unknown]
  - Muscle spasms [Unknown]
  - Drug dose omission [Unknown]
  - Decreased appetite [Unknown]
